FAERS Safety Report 23437963 (Version 2)
Quarter: 2024Q1

REPORT INFORMATION
  Report Type: Spontaneous
  Country: US (occurrence: US)
  Receive Date: 20240124
  Receipt Date: 20240306
  Transmission Date: 20240410
  Serious: Yes (Hospitalization)
  Sender: FDA-Public Use
  Company Number: US-PFIZER INC-202400018151

PATIENT
  Age: 12 Year
  Sex: Male
  Weight: 43.54 kg

DRUGS (1)
  1. GENOTROPIN [Suspect]
     Active Substance: SOMATROPIN
     Indication: Growth disorder
     Dosage: 2.0 MG ONCE DAY
     Dates: start: 20240106

REACTIONS (5)
  - Influenza [Recovered/Resolved]
  - Headache [Recovered/Resolved]
  - Injection site pain [Recovered/Resolved]
  - Injection site paraesthesia [Recovered/Resolved]
  - Arthralgia [Unknown]

NARRATIVE: CASE EVENT DATE: 20240101
